FAERS Safety Report 18935421 (Version 1)
Quarter: 2021Q1

REPORT INFORMATION
  Report Type: Spontaneous
  Country: FR (occurrence: FR)
  Receive Date: 20210224
  Receipt Date: 20210224
  Transmission Date: 20210420
  Serious: Yes (Hospitalization)
  Sender: FDA-Public Use
  Company Number: FR-TEVA-2021-FR-1882674

PATIENT
  Age: 62 Year
  Sex: Female

DRUGS (4)
  1. VINCRISTINE TEVA [Suspect]
     Active Substance: VINCRISTINE
     Indication: HIGH-GRADE B-CELL LYMPHOMA
     Route: 041
     Dates: start: 20201209
  2. RIXATHON [Suspect]
     Active Substance: RITUXIMAB
     Indication: HIGH-GRADE B-CELL LYMPHOMA
     Route: 041
     Dates: start: 20201209
  3. METHOTREXATE MYLAN [Suspect]
     Active Substance: METHOTREXATE SODIUM
     Indication: HIGH-GRADE B-CELL LYMPHOMA
     Route: 041
     Dates: start: 20201209
  4. ENDOXAN [Suspect]
     Active Substance: CYCLOPHOSPHAMIDE
     Indication: HIGH-GRADE B-CELL LYMPHOMA
     Route: 041
     Dates: start: 20201209

REACTIONS (1)
  - Nephrogenic diabetes insipidus [Recovering/Resolving]

NARRATIVE: CASE EVENT DATE: 20201210
